FAERS Safety Report 8778431 (Version 3)
Quarter: 2012Q4

REPORT INFORMATION
  Report Type: 
  Country: GB (occurrence: GB)
  Receive Date: 20120911
  Receipt Date: 20121116
  Transmission Date: 20130627
  Serious: Yes (Hospitalization)
  Sender: FDA-Public Use
  Company Number: GB-BIOGENIDEC-2012BI034510

PATIENT
  Sex: Female

DRUGS (1)
  1. TYSABRI [Suspect]
     Indication: PRODUCT USED FOR UNKNOWN INDICATION
     Route: 042
     Dates: start: 20120801

REACTIONS (4)
  - Multiple sclerosis relapse [Not Recovered/Not Resolved]
  - Trigeminal neuralgia [Unknown]
  - Hypertension [Unknown]
  - Catheter site pain [Unknown]
